FAERS Safety Report 14650761 (Version 2)
Quarter: 2018Q1

REPORT INFORMATION
  Report Type: Spontaneous
  Country: JP (occurrence: JP)
  Receive Date: 20180316
  Receipt Date: 20180330
  Transmission Date: 20180509
  Serious: Yes (Death, Hospitalization)
  Sender: FDA-Public Use
  Company Number: JP-LUNDBECK-DKLU2045850

PATIENT
  Age: 47 Year
  Sex: Male

DRUGS (17)
  1. MYSTAN [Interacting]
     Active Substance: CLOBAZAM
     Route: 048
     Dates: start: 20161221, end: 20180108
  2. EXCEGRAN [Interacting]
     Active Substance: ZONISAMIDE
     Indication: PRODUCT USED FOR UNKNOWN INDICATION
     Route: 048
     Dates: end: 20170321
  3. FYCOMPA [Interacting]
     Active Substance: PERAMPANEL
     Route: 048
     Dates: start: 20160728, end: 20160809
  4. EXCEGRAN [Interacting]
     Active Substance: ZONISAMIDE
     Route: 048
     Dates: start: 20170322, end: 20180108
  5. PROPETO [Concomitant]
     Indication: PRODUCT USED FOR UNKNOWN INDICATION
     Route: 065
  6. FYCOMPA [Interacting]
     Active Substance: PERAMPANEL
     Route: 048
     Dates: start: 20160824, end: 20160906
  7. FLUNITRAZEPAM [Concomitant]
     Active Substance: FLUNITRAZEPAM
     Indication: PRODUCT USED FOR UNKNOWN INDICATION
     Route: 065
  8. ALEVIATIN [Interacting]
     Active Substance: PHENYTOIN SODIUM
     Indication: EPILEPSY
     Route: 048
     Dates: end: 20180128
  9. MYSTAN [Interacting]
     Active Substance: CLOBAZAM
     Route: 048
     Dates: start: 20160907, end: 20161018
  10. MYSTAN [Suspect]
     Active Substance: CLOBAZAM
     Indication: EPILEPSY
     Route: 048
     Dates: start: 20161221, end: 20180108
  11. FYCOMPA [Interacting]
     Active Substance: PERAMPANEL
     Indication: EPILEPSY
     Route: 048
     Dates: start: 20160713, end: 20160727
  12. FYCOMPA [Interacting]
     Active Substance: PERAMPANEL
     Route: 048
     Dates: start: 20160810, end: 20160823
  13. FYCOMPA [Interacting]
     Active Substance: PERAMPANEL
     Route: 048
     Dates: start: 20161019, end: 20180108
  14. BROTIZOLAM [Concomitant]
     Active Substance: BROTIZOLAM
     Indication: PRODUCT USED FOR UNKNOWN INDICATION
     Route: 065
  15. UREA. [Concomitant]
     Active Substance: UREA
     Indication: PRODUCT USED FOR UNKNOWN INDICATION
     Route: 065
  16. EXCEGRAN [Interacting]
     Active Substance: ZONISAMIDE
     Route: 048
     Dates: start: 20180110, end: 20180110
  17. FYCOMPA [Interacting]
     Active Substance: PERAMPANEL
     Route: 048
     Dates: start: 20160920, end: 20161018

REACTIONS (1)
  - Toxicity to various agents [Fatal]

NARRATIVE: CASE EVENT DATE: 2016
